FAERS Safety Report 6251911-6 (Version None)
Quarter: 2009Q2

REPORT INFORMATION
  Report Type: 
  Country: None (occurrence: None)
  Receive Date: 20090630
  Receipt Date: 20090618
  Transmission Date: 20091009
  Serious: Yes (Other)
  Sender: FDA-Public Use
  Company Number: GR-ELI_LILLY_AND_COMPANY-GR200905002122

PATIENT
  Age: 46 Year
  Sex: Female

DRUGS (4)
  1. STRATTERA [Suspect]
     Indication: ATTENTION DEFICIT/HYPERACTIVITY DISORDER
     Dosage: UNKNOWN LOW DOSE, DAILY (1/D)
     Route: 048
     Dates: start: 20080901
  2. STRATTERA [Suspect]
     Dosage: UP TO 40 MG, DAILY (1/D)
     Route: 048
  3. BUPRENORPHINE HCL [Concomitant]
     Indication: REHABILITATION THERAPY
     Dosage: UNK, UNKNOWN
     Route: 048
  4. LADOSE [Concomitant]
     Indication: DEPRESSION
     Dosage: 20 MG, UNKNOWN
     Route: 048

REACTIONS (4)
  - AGGRESSION [None]
  - AMENORRHOEA [None]
  - HEADACHE [None]
  - VOMITING [None]
